FAERS Safety Report 7959350-4 (Version None)
Quarter: 2011Q4

REPORT INFORMATION
  Report Type: 
  Country: None (occurrence: None)
  Receive Date: 20111206
  Receipt Date: 20111129
  Transmission Date: 20120403
  Serious: Yes (Other)
  Sender: FDA-Public Use
  Company Number: CN-PFIZER INC-2011288916

PATIENT
  Age: 30 Year
  Sex: Male

DRUGS (2)
  1. SOLU-MEDROL [Suspect]
     Dosage: 1.0G DAILY, DURING OPERATION
     Dates: start: 20111101, end: 20111101
  2. SOLU-MEDROL [Suspect]
     Dosage: 0.5G DAILY, AFTER OPERATION
     Dates: start: 20111101, end: 20111101

REACTIONS (3)
  - CONFUSIONAL STATE [None]
  - DELIRIUM [None]
  - CONVULSION [None]
